FAERS Safety Report 6174038-0 (Version None)
Quarter: 2009Q2

REPORT INFORMATION
  Report Type: 
  Country: None (occurrence: None)
  Receive Date: 20090430
  Receipt Date: 20080226
  Transmission Date: 20091009
  Serious: No
  Sender: FDA-Public Use
  Company Number: US-ASTRAZENECA-2008UW04043

PATIENT
  Age: 46 Year
  Sex: Male
  Weight: 69.9 kg

DRUGS (4)
  1. NEXIUM [Suspect]
     Indication: GASTROOESOPHAGEAL REFLUX DISEASE
     Route: 048
     Dates: start: 20080101, end: 20080201
  2. NEXIUM [Suspect]
     Route: 048
     Dates: start: 20080222
  3. NASONEX [Concomitant]
  4. ALLEGRA [Concomitant]

REACTIONS (1)
  - THROAT IRRITATION [None]
